FAERS Safety Report 5976447-9 (Version None)
Quarter: 2008Q4

REPORT INFORMATION
  Report Type: 
  Country: None (occurrence: None)
  Receive Date: 20081126
  Receipt Date: 20081121
  Transmission Date: 20090506
  Serious: No
  Sender: FDA-Public Use
  Company Number: APP200801174

PATIENT
  Age: 30 Year
  Sex: Female

DRUGS (1)
  1. HEPARIN SODIUM INJECTION [Suspect]
     Indication: THROMBOSIS
     Dates: start: 20060101, end: 20060101

REACTIONS (1)
  - DRUG EXPOSURE DURING PREGNANCY [None]
